FAERS Safety Report 26120008 (Version 1)
Quarter: 2025Q4

REPORT INFORMATION
  Report Type: Spontaneous
  Country: JP (occurrence: JP)
  Receive Date: 20251204
  Receipt Date: 20251204
  Transmission Date: 20260118
  Serious: Yes (Hospitalization)
  Sender: BIOCODEX
  Company Number: JP-BIOCODEX2-2025001893

PATIENT
  Age: 10 Year
  Sex: Female

DRUGS (26)
  1. DIACOMIT [Suspect]
     Active Substance: STIRIPENTOL
     Indication: Severe myoclonic epilepsy of infancy
     Dosage: STARTED RECEIVING AT A DOSE OF 125MG
     Dates: start: 20250808, end: 20250904
  2. DIACOMIT [Suspect]
     Active Substance: STIRIPENTOL
     Dosage: WAS INCREASED TO 250MG
     Dates: start: 20250905, end: 20251010
  3. DIACOMIT [Suspect]
     Active Substance: STIRIPENTOL
     Dosage: 400MG ONCE DAILY
     Dates: start: 20251011, end: 20251016
  4. DIACOMIT [Suspect]
     Active Substance: STIRIPENTOL
     Dosage: WAS DECREASED TO 300MG
     Dates: start: 20251017, end: 20251020
  5. DIACOMIT [Suspect]
     Active Substance: STIRIPENTOL
  6. DIACOMIT [Suspect]
     Active Substance: STIRIPENTOL
  7. DIACOMIT [Suspect]
     Active Substance: STIRIPENTOL
  8. DIACOMIT [Suspect]
     Active Substance: STIRIPENTOL
  9. FYCOMPA [Concomitant]
     Active Substance: PERAMPANEL
     Indication: Generalised tonic-clonic seizure
  10. FYCOMPA [Concomitant]
     Active Substance: PERAMPANEL
  11. MYSTAN [Concomitant]
     Active Substance: CLOBAZAM
     Indication: Seizure
  12. MYSTAN [Concomitant]
     Active Substance: CLOBAZAM
  13. VIMPAT [Concomitant]
     Active Substance: LACOSAMIDE
     Indication: Generalised tonic-clonic seizure
  14. VIMPAT [Concomitant]
     Active Substance: LACOSAMIDE
  15. DEPAKENE [Concomitant]
     Active Substance: VALPROIC ACID
     Indication: Epilepsy
  16. DEPAKENE [Concomitant]
     Active Substance: VALPROIC ACID
  17. MIYA-BM [Concomitant]
     Active Substance: CLOSTRIDIUM BUTYRICUM SPORES STRAIN M-55
     Indication: Abdominal symptom
  18. MIYA-BM [Concomitant]
     Active Substance: CLOSTRIDIUM BUTYRICUM SPORES STRAIN M-55
  19. DIETARY SUPPLEMENT\PROBIOTICS [Concomitant]
     Active Substance: DIETARY SUPPLEMENT\PROBIOTICS NOS
     Indication: Abdominal symptom
  20. DIETARY SUPPLEMENT\PROBIOTICS [Concomitant]
     Active Substance: DIETARY SUPPLEMENT\PROBIOTICS NOS
  21. AMBROXOL HYDROCHLORIDE [Concomitant]
     Active Substance: AMBROXOL HYDROCHLORIDE
     Indication: Asthma
  22. AMBROXOL HYDROCHLORIDE [Concomitant]
     Active Substance: AMBROXOL HYDROCHLORIDE
  23. TIZANIDINE [Concomitant]
     Active Substance: TIZANIDINE
     Indication: Product used for unknown indication
  24. TIZANIDINE [Concomitant]
     Active Substance: TIZANIDINE
  25. MAGNESIUM OXIDE [Concomitant]
     Active Substance: MAGNESIUM OXIDE
     Indication: Constipation
  26. MAGNESIUM OXIDE [Concomitant]
     Active Substance: MAGNESIUM OXIDE

REACTIONS (2)
  - Altered state of consciousness [Recovered/Resolved]
  - Hypothermia [Recovered/Resolved]

NARRATIVE: CASE EVENT DATE: 20251015
